FAERS Safety Report 5697737-3 (Version None)
Quarter: 2008Q2

REPORT INFORMATION
  Report Type: 
  Country: None (occurrence: None)
  Receive Date: 20080403
  Receipt Date: 20071121
  Transmission Date: 20081010
  Serious: Yes (Hospitalization)
  Sender: FDA-Public Use
  Company Number: 2007-0012747

PATIENT
  Age: 51 Year
  Sex: Male

DRUGS (6)
  1. TRUVADA [Suspect]
     Indication: HIV INFECTION
     Dosage: 1 DOSAGE FORMS, 1 IN 1 D, ORAL
     Route: 048
     Dates: start: 20060823, end: 20071005
  2. PREZISTA [Concomitant]
  3. NORVIR [Concomitant]
  4. MK0518 [Concomitant]
  5. VANCOMYCIN [Concomitant]
  6. MOXIFLOXACIN HCL [Concomitant]

REACTIONS (1)
  - PYREXIA [None]
